FAERS Safety Report 16925186 (Version 1)
Quarter: 2019Q4

REPORT INFORMATION
  Report Type: Spontaneous
  Country: US (occurrence: US)
  Receive Date: 20190823
  Receipt Date: 20190823
  Transmission Date: 20200122
  Serious: Yes (Hospitalization)
  Sender: FDA-Public Use
  Company Number: None

PATIENT
  Age: 57 Year
  Sex: Male
  Weight: 70.31 kg

DRUGS (1)
  1. TEMOZOLOMIDE. [Suspect]
     Active Substance: TEMOZOLOMIDE
     Dates: end: 20190311

REACTIONS (12)
  - Seizure [None]
  - Condition aggravated [None]
  - Pyrexia [None]
  - Glioblastoma multiforme [None]
  - Confusional state [None]
  - Radiation necrosis [None]
  - Malignant neoplasm progression [None]
  - Sedation [None]
  - Intentional product use issue [None]
  - Disorganised speech [None]
  - Treatment noncompliance [None]
  - Visual field defect [None]

NARRATIVE: CASE EVENT DATE: 20190331
